FAERS Safety Report 4734179-9 (Version None)
Quarter: 2005Q3

REPORT INFORMATION
  Report Type: 
  Country: None (occurrence: None)
  Receive Date: 20050803
  Receipt Date: 20050803
  Transmission Date: 20060218
  Serious: No
  Sender: FDA-Public Use
  Company Number: None

PATIENT
  Age: 57 Year
  Sex: Male
  Weight: 68.9467 kg

DRUGS (1)
  1. ATENOLOL [Suspect]
     Indication: BLOOD PRESSURE
     Dosage: 50MG PO   STARTED @ HOME
     Route: 048

REACTIONS (6)
  - BODY TEMPERATURE INCREASED [None]
  - HYPERTHERMIA [None]
  - LOSS OF CONSCIOUSNESS [None]
  - PHARYNGOLARYNGEAL PAIN [None]
  - RASH [None]
  - STOMATITIS [None]
